FAERS Safety Report 10031032 (Version 1)
Quarter: 2014Q1

REPORT INFORMATION
  Report Type: Spontaneous
  Country: US (occurrence: US)
  Receive Date: 20140324
  Receipt Date: 20140324
  Transmission Date: 20141002
  Serious: No
  Sender: FDA-Public Use
  Company Number: US-009507513-1403USA005400

PATIENT
  Sex: 0

DRUGS (4)
  1. ROCURONIUM BROMIDE [Suspect]
     Indication: NEUROMUSCULAR BLOCKADE
     Dosage: 27.33 MCG/MIN
  2. ROCURONIUM BROMIDE [Suspect]
     Dosage: 18.33 MCG/MIN
  3. ROCURONIUM BROMIDE [Suspect]
     Dosage: 16.00 MCG/MIN
  4. ROCURONIUM BROMIDE [Suspect]
     Dosage: 22.83 MCG/MIN

REACTIONS (1)
  - Peripheral nerve neurostimulation [Unknown]
